FAERS Safety Report 9764969 (Version 2)
Quarter: 2014Q1

REPORT INFORMATION
  Report Type: Spontaneous
  Country: US (occurrence: US)
  Receive Date: 20131217
  Receipt Date: 20140303
  Transmission Date: 20141002
  Serious: No
  Sender: FDA-Public Use
  Company Number: US-BIOGENIDEC-2013BI114234

PATIENT
  Age: 49 Year
  Sex: Female

DRUGS (14)
  1. TECFIDERA [Suspect]
     Indication: MULTIPLE SCLEROSIS
     Route: 048
     Dates: start: 20130522
  2. BOITIN [Concomitant]
  3. KEPPRA [Concomitant]
  4. KLONOPIN [Concomitant]
  5. MAGNESIUM [Concomitant]
  6. NEURONTIN [Concomitant]
  7. TRIMETHOPRIM [Concomitant]
  8. VIT B12 [Concomitant]
  9. VIT D3 COMPLETE [Concomitant]
  10. ZONEGRAN [Concomitant]
  11. LORTAB [Concomitant]
  12. METHOCARBAMOL [Concomitant]
  13. MIRTAZAPINE [Concomitant]
  14. ROBAXIN [Concomitant]

REACTIONS (2)
  - Abnormal loss of weight [Not Recovered/Not Resolved]
  - Decubitus ulcer [Not Recovered/Not Resolved]
